FAERS Safety Report 22180001 (Version 3)
Quarter: 2024Q4

REPORT INFORMATION
  Report Type: Report from Study
  Country: CA (occurrence: CA)
  Receive Date: 20230406
  Receipt Date: 20241017
  Transmission Date: 20250115
  Serious: Yes (Other)
  Sender: TAKEDA
  Company Number: CA-TAKEDA-2022TUS028456

PATIENT
  Age: 51 Year
  Sex: Female

DRUGS (8)
  1. VEDOLIZUMAB [Suspect]
     Active Substance: VEDOLIZUMAB
     Indication: Crohn^s disease
     Dosage: 300 MILLIGRAM
     Route: 042
     Dates: start: 20220317
  2. VEDOLIZUMAB [Suspect]
     Active Substance: VEDOLIZUMAB
     Dosage: 300 MILLIGRAM
     Route: 042
  3. VEDOLIZUMAB [Suspect]
     Active Substance: VEDOLIZUMAB
     Dosage: 300 MILLIGRAM
     Route: 042
  4. DRIXORAL [Suspect]
     Active Substance: DEXBROMPHENIRAMINE MALEATE\PSEUDOEPHEDRINE SULFATE
     Indication: Product used for unknown indication
     Dosage: UNK
     Route: 065
  5. PREDNISONE [Concomitant]
     Active Substance: PREDNISONE
     Dosage: UNK
     Dates: start: 2001
  6. IDACIO [Concomitant]
     Active Substance: ADALIMUMAB-AACF
     Dosage: UNK
     Dates: start: 202111
  7. COLLAGEN [Concomitant]
     Active Substance: COLLAGEN
     Dosage: UNK
  8. VITAMINS [Concomitant]
     Active Substance: VITAMINS
     Dosage: UNK

REACTIONS (14)
  - Intestinal obstruction [Recovered/Resolved]
  - Faeces soft [Unknown]
  - Psoriasis [Unknown]
  - Diarrhoea [Recovered/Resolved]
  - Scar [Unknown]
  - Tooth abscess [Recovered/Resolved]
  - Conjunctivitis [Recovered/Resolved]
  - Abdominal pain [Recovered/Resolved]
  - Infusion site pain [Unknown]
  - Pruritus [Unknown]
  - Bronchitis [Recovered/Resolved]
  - Incorrect dose administered [Recovered/Resolved]
  - COVID-19 [Recovered/Resolved]
  - Nasal congestion [Recovered/Resolved]

NARRATIVE: CASE EVENT DATE: 20220426
